FAERS Safety Report 8784979 (Version 1)
Quarter: 2012Q4

REPORT INFORMATION
  Report Type: Report from Study
  Country: ES (occurrence: ES)
  Receive Date: 20120914
  Receipt Date: 20120914
  Transmission Date: 20130627
  Serious: Yes (Other)
  Sender: FDA-Public Use
  Company Number: ES-ABBOTT-12P-144-0978186-00

PATIENT
  Age: 51 Year
  Sex: Male
  Weight: 100 kg

DRUGS (1)
  1. HUMIRA [Suspect]
     Dates: start: 20100721, end: 20111212

REACTIONS (4)
  - Polychondritis [Not Recovered/Not Resolved]
  - Ear pain [Unknown]
  - Erythema [Unknown]
  - Pain [Unknown]
